FAERS Safety Report 8909603 (Version 3)
Quarter: 2013Q1

REPORT INFORMATION
  Report Type: Spontaneous
  Country: US (occurrence: US)
  Receive Date: 20121115
  Receipt Date: 20130315
  Transmission Date: 20140127
  Serious: Yes (Hospitalization)
  Sender: FDA-Public Use
  Company Number: US-BAYER-2012-116499

PATIENT
  Age: 27 Year
  Sex: Female

DRUGS (24)
  1. YAZ [Suspect]
     Dosage: UNK
     Dates: start: 20060427, end: 20061103
  2. LISINOPRIL [Concomitant]
     Indication: HYPERTENSION
  3. LISINOPRIL [Concomitant]
     Indication: MIGRAINE
  4. PROPRANOLOL [Concomitant]
     Indication: HYPERTENSION
  5. PROPRANOLOL [Concomitant]
     Indication: MIGRAINE
  6. TOPOMAX [Concomitant]
     Indication: MIGRAINE
  7. TOPOMAX [Concomitant]
     Indication: HYPERTENSION
  8. SPIRONOLACTONE [Concomitant]
     Indication: DIURETIC THERAPY
  9. SPIRONOLACTONE [Concomitant]
     Indication: DIURETIC THERAPY
     Dosage: 25 MG, QD
  10. PROMETHAZIN [Concomitant]
     Dosage: 25 MG, BID
  11. METFORMIN [Concomitant]
     Dosage: 500 MG, QD
     Route: 048
  12. METHOCARBAMOL [METHOCARBAMOL] [Concomitant]
     Dosage: 750 MG, UNK
     Route: 048
  13. PAROXETINE [Concomitant]
     Dosage: 60 MG, QD
     Route: 048
  14. OMEPRAZOLE [Concomitant]
     Dosage: 20 MG, UNK
  15. HYDROCHLOROTHIAZIDE [Concomitant]
     Dosage: 25 MG, QD
     Route: 048
  16. AMLODIPINE [Concomitant]
  17. CLONAZEPAM [Concomitant]
     Dosage: 1 MG, BID
  18. LAMOTRIGINE [Concomitant]
     Dosage: DAILY DOSE 25 MG
  19. FERROUS SULFATE [Concomitant]
     Dosage: 325 UNK, TID
  20. ADVAIR [Concomitant]
     Dosage: 1 PUFF, BID
  21. ANAPROX [Concomitant]
     Dosage: 550 MG, 1-2 TIMES A DAY
     Route: 048
  22. AVELOX [Concomitant]
  23. TRIPHASIL [Concomitant]
  24. OXYCODONE [Concomitant]

REACTIONS (9)
  - Pulmonary embolism [Recovered/Resolved]
  - Anxiety [None]
  - Emotional distress [None]
  - Injury [Recovered/Resolved]
  - Pain [None]
  - General physical health deterioration [Recovered/Resolved]
  - Anhedonia [None]
  - Chest pain [Recovered/Resolved]
  - Dyspnoea [Recovered/Resolved]
